FAERS Safety Report 15862799 (Version 1)
Quarter: 2018Q4

REPORT INFORMATION
  Report Type: Spontaneous
  Country: US (occurrence: US)
  Receive Date: 20181231
  Receipt Date: 20181231
  Transmission Date: 20190205
  Serious: No
  Sender: FDA-Public Use
  Company Number: None

PATIENT
  Age: 60 Year
  Sex: Male
  Weight: 147.87 kg

DRUGS (3)
  1. OTEZLA [Suspect]
     Active Substance: APREMILAST
     Indication: PSORIATIC ARTHROPATHY
  2. OTEZLA [Suspect]
     Active Substance: APREMILAST
     Indication: RHEUMATOID ARTHRITIS
  3. OTEZLA [Suspect]
     Active Substance: APREMILAST
     Indication: JUVENILE PSORIATIC ARTHRITIS
     Route: 048
     Dates: start: 201712

REACTIONS (3)
  - Psoriasis [None]
  - Neoplasm malignant [None]
  - Jaundice [None]
